FAERS Safety Report 6392403-3 (Version None)
Quarter: 2009Q4

REPORT INFORMATION
  Report Type: 
  Country: None (occurrence: None)
  Receive Date: 20091007
  Receipt Date: 20090929
  Transmission Date: 20100525
  Serious: Yes (Hospitalization, Other)
  Sender: FDA-Public Use
  Company Number: US-PFIZER INC-2009277019

PATIENT
  Sex: Female
  Weight: 74.83 kg

DRUGS (5)
  1. LIPITOR [Suspect]
     Indication: BLOOD CHOLESTEROL INCREASED
     Dosage: 80 MG, DAILY
     Dates: start: 20081201, end: 20090901
  2. LOPRESSOR [Concomitant]
     Dosage: UNK
  3. BENADRYL [Concomitant]
     Indication: SEASONAL ALLERGY
     Dosage: UNK
  4. METHOCARBAMOL [Concomitant]
     Indication: MUSCLE SPASMS
     Dosage: UNK
  5. CLARITIN [Concomitant]
     Indication: SEASONAL ALLERGY
     Dosage: UNK

REACTIONS (1)
  - HEPATITIS A [None]
